FAERS Safety Report 20726973 (Version 3)
Quarter: 2023Q1

REPORT INFORMATION
  Report Type: Spontaneous
  Country: DE (occurrence: DE)
  Receive Date: 20220419
  Receipt Date: 20230214
  Transmission Date: 20230417
  Serious: Yes (Death)
  Sender: FDA-Public Use
  Company Number: DE-MYLANLABS-2022M1027617

PATIENT
  Age: 8 Month
  Sex: Male
  Weight: 8 kg

DRUGS (1)
  1. EPINEPHRINE [Suspect]
     Active Substance: EPINEPHRINE
     Indication: Product used for unknown indication
     Dosage: 2 MILLIGRAM, TID (250 MCG/KG, DRD OF 2500 PERCENT)

REACTIONS (2)
  - Accidental overdose [Fatal]
  - Incorrect route of product administration [Unknown]
